FAERS Safety Report 7604317-9 (Version None)
Quarter: 2011Q2

REPORT INFORMATION
  Report Type: 
  Country: None (occurrence: None)
  Receive Date: 20110630
  Receipt Date: 20110621
  Transmission Date: 20111010
  Serious: Yes (Other)
  Sender: FDA-Public Use
  Company Number: LEO-2011-00374

PATIENT
  Age: 63 Year
  Sex: Male

DRUGS (2)
  1. ACETAMINOPHEN [Concomitant]
  2. INNOHEP [Suspect]
     Dosage: (3500 IU,1 D),SUBCUTANEOUS
     Route: 058
     Dates: start: 20110401

REACTIONS (2)
  - OFF LABEL USE [None]
  - THROMBOCYTOSIS [None]
